FAERS Safety Report 8532945-5 (Version None)
Quarter: 2012Q3

REPORT INFORMATION
  Report Type: 
  Country: None (occurrence: None)
  Receive Date: 20120724
  Receipt Date: 20120711
  Transmission Date: 20120928
  Serious: Yes (Other)
  Sender: FDA-Public Use
  Company Number: US-JNJFOC-20120706746

PATIENT
  Age: 19 Year
  Sex: Male

DRUGS (4)
  1. RISPERIDONE [Suspect]
     Indication: SCHIZOPHRENIA
     Route: 065
  2. RISPERIDONE [Suspect]
     Dosage: 2 MG AT NIGHT AND 3 MG IN THE MORNING
     Route: 065
  3. RISPERIDONE [Suspect]
     Route: 065
  4. SERTRALINE HYDROCHLORIDE [Suspect]
     Indication: SCHIZOPHRENIA
     Route: 065

REACTIONS (4)
  - ABNORMAL BEHAVIOUR [None]
  - EXTRAPYRAMIDAL DISORDER [None]
  - DELUSION [None]
  - SPEECH DISORDER [None]
